FAERS Safety Report 8571826-8 (Version None)
Quarter: 2012Q3

REPORT INFORMATION
  Report Type: 
  Country: None (occurrence: None)
  Receive Date: 20120724
  Receipt Date: 20120711
  Transmission Date: 20120928
  Serious: Yes (Other)
  Sender: FDA-Public Use
  Company Number: FK201201913

PATIENT
  Age: 72 Year
  Sex: Female

DRUGS (2)
  1. AMIODARONE HCL [Suspect]
     Indication: TACHYARRHYTHMIA
  2. ATORVASTATIN [Concomitant]

REACTIONS (5)
  - NEUROPATHY PERIPHERAL [None]
  - MYOPATHY [None]
  - MYOCLONUS [None]
  - ATAXIA [None]
  - DYSPHAGIA [None]
